FAERS Safety Report 24894495 (Version 2)
Quarter: 2025Q3

REPORT INFORMATION
  Report Type: Report from Study
  Country: AE (occurrence: AE)
  Receive Date: 20250128
  Receipt Date: 20250803
  Transmission Date: 20251020
  Serious: Yes (Hospitalization)
  Sender: ALEXION PHARMACEUTICALS
  Company Number: AE-AstraZeneca-CH-00791142A

PATIENT
  Sex: Female

DRUGS (1)
  1. DURVALUMAB [Suspect]
     Active Substance: DURVALUMAB
     Indication: Lung neoplasm malignant
     Dosage: 800 MILLIGRAM, Q2W
     Dates: start: 202410

REACTIONS (1)
  - Muscle spasms [Recovered/Resolved]

NARRATIVE: CASE EVENT DATE: 20250101
